FAERS Safety Report 23778261 (Version 2)
Quarter: 2024Q2

REPORT INFORMATION
  Report Type: Spontaneous
  Country: JP (occurrence: JP)
  Receive Date: 20240424
  Receipt Date: 20240517
  Transmission Date: 20240716
  Serious: Yes (Hospitalization)
  Sender: FDA-Public Use
  Company Number: JP-AMGEN-JPNSP2024080086

PATIENT
  Age: 88 Year
  Sex: Female

DRUGS (3)
  1. EVENITY [Suspect]
     Active Substance: ROMOSOZUMAB-AQQG
     Indication: Osteoporosis
     Dosage: 210 MILLIGRAM
     Route: 058
  2. BONVIVA [Concomitant]
     Active Substance: IBANDRONATE SODIUM
     Indication: Osteoporosis
     Dosage: UNK
     Route: 065
  3. FORTEO [Concomitant]
     Active Substance: TERIPARATIDE
     Indication: Osteoporosis
     Dosage: UNK
     Route: 065

REACTIONS (1)
  - Illness [Unknown]
